FAERS Safety Report 5331950-X (Version None)
Quarter: 2007Q2

REPORT INFORMATION
  Report Type: 
  Country: None (occurrence: None)
  Receive Date: 20070523
  Receipt Date: 20070517
  Transmission Date: 20071010
  Serious: Yes (Other)
  Sender: FDA-Public Use
  Company Number: US-JNJFOC-20070404948

PATIENT
  Sex: Female
  Weight: 24.04 kg

DRUGS (1)
  1. CONCERTA [Suspect]
     Indication: ATTENTION DEFICIT/HYPERACTIVITY DISORDER
     Route: 048

REACTIONS (6)
  - DRUG SCREEN POSITIVE [None]
  - DYSKINESIA [None]
  - MYDRIASIS [None]
  - PHARYNGEAL OEDEMA [None]
  - PSYCHOTIC DISORDER [None]
  - REBOUND EFFECT [None]
